FAERS Safety Report 9274488 (Version 2)
Quarter: 2013Q2

REPORT INFORMATION
  Report Type: Spontaneous
  Country: GB (occurrence: GB)
  Receive Date: 20130507
  Receipt Date: 20130520
  Transmission Date: 20140414
  Serious: Yes (Other)
  Sender: FDA-Public Use
  Company Number: GB-ROCHE-1220994

PATIENT
  Sex: Male

DRUGS (2)
  1. ZELBORAF [Suspect]
     Indication: MALIGNANT MELANOMA
     Route: 065
     Dates: start: 20130415
  2. CETRABEN EMOLLIENT CREAM (UNITED KINGDOM) [Concomitant]

REACTIONS (5)
  - Skin toxicity [Unknown]
  - Oedema [Unknown]
  - Erythema [Unknown]
  - Nipple disorder [Unknown]
  - Blood prolactin [Unknown]
